FAERS Safety Report 8888032 (Version 1)
Quarter: 2012Q4

REPORT INFORMATION
  Report Type: 
  Country: US (occurrence: US)
  Receive Date: 20121106
  Receipt Date: 20121106
  Transmission Date: 20130627
  Serious: No
  Sender: FDA-Public Use
  Company Number: US-BIOGENIDEC-2012BI050021

PATIENT
  Age: 78 Year
  Sex: Male
  Weight: 77 kg

DRUGS (11)
  1. TYSABRI [Suspect]
     Indication: MULTIPLE SCLEROSIS
     Route: 042
     Dates: start: 20080324, end: 20121002
  2. ANTIVERT [Concomitant]
     Indication: NAUSEA
  3. ANTIVERT [Concomitant]
     Indication: DIZZINESS
  4. HYDROCHLOROTHIAZIDE [Concomitant]
     Indication: SWELLING
  5. LASIX [Concomitant]
     Indication: SWELLING
  6. MIRAPEX [Concomitant]
     Indication: RESTLESS LEGS SYNDROME
  7. NEXIUM [Concomitant]
     Indication: GASTROOESOPHAGEAL REFLUX DISEASE
  8. POTASSIUM CHLORIDE [Concomitant]
     Indication: BLOOD POTASSIUM DECREASED
  9. TEGRETOL [Concomitant]
     Indication: CONVULSION
  10. VIMPAT [Concomitant]
     Indication: CONVULSION
  11. VIMPAT [Concomitant]
     Indication: NEURALGIA

REACTIONS (1)
  - Multiple sclerosis relapse [Unknown]
